FAERS Safety Report 4639124-2 (Version None)
Quarter: 2005Q2

REPORT INFORMATION
  Report Type: 
  Country: None (occurrence: None)
  Receive Date: 20050419
  Receipt Date: 20050411
  Transmission Date: 20051028
  Serious: Yes (Hospitalization)
  Sender: FDA-Public Use
  Company Number: PHFR2005GB01477

PATIENT
  Age: 39 Year
  Sex: Male

DRUGS (2)
  1. CLOZARIL [Suspect]
     Indication: SCHIZOPHRENIA
     Dates: start: 20040511
  2. CLOZARIL [Suspect]
     Dosage: UNK, UNK
     Dates: start: 20050408

REACTIONS (3)
  - MEDICATION ERROR [None]
  - SEDATION [None]
  - SOMNOLENCE [None]
